FAERS Safety Report 10692560 (Version 6)
Quarter: 2017Q1

REPORT INFORMATION
  Report Type: Spontaneous
  Country: US (occurrence: US)
  Receive Date: 20150106
  Receipt Date: 20170112
  Transmission Date: 20170428
  Serious: No
  Sender: FDA-Public Use
  Company Number: US-PFIZER INC-2015001339

PATIENT
  Age: 70 Year
  Sex: Female
  Weight: 62 kg

DRUGS (28)
  1. LEVEMIR [Concomitant]
     Active Substance: INSULIN DETEMIR
     Indication: DIABETES MELLITUS
     Dosage: 12 IU, 1X/DAY (BEDTIME)
     Route: 058
  2. SYNTHROID [Concomitant]
     Active Substance: LEVOTHYROXINE SODIUM
     Dosage: 0.125 MG, 1X/DAY
     Route: 048
  3. VITAMIN D [Concomitant]
     Active Substance: CHOLECALCIFEROL
     Dosage: UNK
  4. VALISONE G [Concomitant]
     Indication: DERMATITIS CONTACT
     Dosage: 0.1%
     Route: 061
  5. LEVOTHYROXINE SODIUM. [Concomitant]
     Active Substance: LEVOTHYROXINE SODIUM
     Indication: HYPOTHYROIDISM
     Dosage: 150 UG, DAILY
     Route: 048
  6. VENLAFAXINE [Concomitant]
     Active Substance: VENLAFAXINE HYDROCHLORIDE
     Indication: FATIGUE
     Dosage: 75 MG, 1X/DAY
     Route: 048
  7. SUTENT [Suspect]
     Active Substance: SUNITINIB MALATE
     Indication: RENAL CELL CARCINOMA STAGE IV
     Dosage: 37.5 MG, CYCLIC (ONCE A DAY FOR 2 WEEKS THEN OFF 1 WEEK)
     Dates: start: 201310, end: 201311
  8. LOSARTAN. [Concomitant]
     Active Substance: LOSARTAN
     Indication: HYPERTENSION
     Dosage: 100 MG, 1X/DAY IN THE MORNING
     Route: 048
  9. OMEGA 3 FISH OIL [Concomitant]
     Active Substance: FISH OIL\OMEGA-3 FATTY ACIDS
     Dosage: UNK
  10. VENLAFAXINE [Concomitant]
     Active Substance: VENLAFAXINE HYDROCHLORIDE
     Indication: FIBROMYALGIA
  11. ONDANSETRON [Concomitant]
     Active Substance: ONDANSETRON
     Dosage: 08 MG, AS NEEDED (EVERY 8 HOURS)
     Route: 048
  12. NOVOLOG [Concomitant]
     Active Substance: INSULIN ASPART
     Dosage: UNK, 1X/DAY
  13. METOPROLOL. [Concomitant]
     Active Substance: METOPROLOL
     Indication: HYPERTENSION
     Dosage: 100 MG, 2X/DAY
     Route: 048
  14. AMLODIPINE [Concomitant]
     Active Substance: AMLODIPINE BESYLATE
     Indication: HYPERTENSION
     Dosage: 10 MG, 1X/DAY IN THE MORNING
     Route: 048
  15. SYNTHROID [Concomitant]
     Active Substance: LEVOTHYROXINE SODIUM
     Indication: HYPOTHYROIDISM
     Dosage: 0.12 MG, 1X/DAY (IN THE MORNING)
     Route: 048
  16. EFFEXOR XR [Concomitant]
     Active Substance: VENLAFAXINE HYDROCHLORIDE
     Indication: CHRONIC FATIGUE SYNDROME
  17. SUTENT [Suspect]
     Active Substance: SUNITINIB MALATE
     Dosage: 50 MG, CYCLIC (FOUR 12.5 MG CAPSULES ONCE DAY; TWO WEEKS ON AND ONE WEEK OFF)
  18. LASIX [Concomitant]
     Active Substance: FUROSEMIDE
     Indication: FLUID RETENTION
     Dosage: 20 MG, 1X/DAY (IN THE MORNING)
     Route: 048
  19. TYLENOL [Concomitant]
     Active Substance: ACETAMINOPHEN
     Dosage: AS NEEDED
  20. FUROSEMIDE. [Concomitant]
     Active Substance: FUROSEMIDE
     Indication: FLUID RETENTION
     Dosage: 20 MG, DAILY
     Route: 048
  21. MECLIZINE HCL [Concomitant]
     Active Substance: MECLIZINE HYDROCHLORIDE
     Indication: VERTIGO POSITIONAL
     Dosage: 25 MG, EVERY 8 HOURS
  22. ZOFRAN [Concomitant]
     Active Substance: ONDANSETRON HYDROCHLORIDE
     Indication: NAUSEA
     Dosage: 8 MG, TID AS NEEDED
  23. SUTENT [Suspect]
     Active Substance: SUNITINIB MALATE
     Dosage: 50 MG, 1X/DAY (FOUR 12.5 MG CAPSULES ONCE DAY, FOUR WEEKS ON AND TWO WEEKS OFF)
     Dates: start: 201311
  24. METFORMIN [Concomitant]
     Active Substance: METFORMIN HYDROCHLORIDE
     Indication: DIABETES MELLITUS
     Dosage: 1000 MG, 2X/DAY
     Route: 048
     Dates: start: 2006
  25. MECLIZINE HCL [Concomitant]
     Active Substance: MECLIZINE HYDROCHLORIDE
     Dosage: 25 MG, AS NEEDED
     Route: 048
  26. EFFEXOR XR [Concomitant]
     Active Substance: VENLAFAXINE HYDROCHLORIDE
     Indication: FIBROMYALGIA
     Dosage: 75 MG, 1X/DAY (IN THE MORNING)
     Route: 048
  27. CALCIUM CITRATE/MAGNESIUM [Concomitant]
     Dosage: UNK
  28. GLUCOSAMINE CHONDROITIN MSM [Concomitant]
     Dosage: UNK

REACTIONS (28)
  - Stomatitis [Recovered/Resolved]
  - Dysgeusia [Recovering/Resolving]
  - Alopecia [Recovering/Resolving]
  - Swelling face [Recovering/Resolving]
  - Skin abrasion [Not Recovered/Not Resolved]
  - Eye swelling [Unknown]
  - Skin discolouration [Recovering/Resolving]
  - Vertigo [Unknown]
  - Hypoglycaemia [Recovering/Resolving]
  - Blood pressure increased [Recovered/Resolved]
  - Vomiting [Recovered/Resolved]
  - Skin discolouration [Unknown]
  - Laryngitis [Unknown]
  - Fall [Recovered/Resolved]
  - Muscle spasms [Recovering/Resolving]
  - Myalgia [Recovering/Resolving]
  - Fatigue [Unknown]
  - Hair colour changes [Recovering/Resolving]
  - Decreased appetite [Recovering/Resolving]
  - Haematoma [Recovering/Resolving]
  - Contusion [Recovering/Resolving]
  - Peripheral swelling [Recovering/Resolving]
  - Oral pain [Recovered/Resolved]
  - Gingival pain [Recovering/Resolving]
  - Face injury [Recovering/Resolving]
  - Nausea [Recovered/Resolved]
  - Nail disorder [Recovered/Resolved]
  - Head injury [Recovering/Resolving]

NARRATIVE: CASE EVENT DATE: 201509
